FAERS Safety Report 17248439 (Version 1)
Quarter: 2020Q1

REPORT INFORMATION
  Report Type: Spontaneous
  Country: US (occurrence: US)
  Receive Date: 20200108
  Receipt Date: 20200108
  Transmission Date: 20200409
  Serious: Yes (Life-Threatening, Other)
  Sender: FDA-Public Use
  Company Number: NVSC2020US002371

PATIENT
  Sex: Male

DRUGS (1)
  1. AMOXICILLIN SODIUM,POTASSIUM CLAVULANATE [Suspect]
     Active Substance: AMOXICILLIN\CLAVULANATE POTASSIUM
     Indication: PRODUCT USED FOR UNKNOWN INDICATION
     Dosage: UNK
     Route: 048
     Dates: start: 20191226, end: 20200103

REACTIONS (6)
  - Feeling abnormal [Unknown]
  - Skin disorder [Unknown]
  - Dysarthria [Unknown]
  - Lip swelling [Unknown]
  - Burn oral cavity [Unknown]
  - Glossitis [Unknown]
